FAERS Safety Report 25715032 (Version 2)
Quarter: 2025Q3

REPORT INFORMATION
  Report Type: Report from Study
  Country: US (occurrence: US)
  Receive Date: 20250822
  Receipt Date: 20250911
  Transmission Date: 20251020
  Serious: No
  Sender: MALLINCKRODT
  Company Number: US-MALLINCKRODT-MNK202505197

PATIENT
  Age: 70 Year
  Sex: Female

DRUGS (1)
  1. CORTICOTROPIN [Suspect]
     Active Substance: CORTICOTROPIN
     Indication: Sarcoidosis
     Route: 058

REACTIONS (2)
  - Injection site discolouration [Unknown]
  - Product dose omission in error [Unknown]
